FAERS Safety Report 4878583-7 (Version None)
Quarter: 2006Q1

REPORT INFORMATION
  Report Type: 
  Country: None (occurrence: None)
  Receive Date: 20060112
  Receipt Date: 20051118
  Transmission Date: 20060701
  Serious: Yes (Hospitalization)
  Sender: FDA-Public Use
  Company Number: JP-BOEHRINGER INGELHEIM PHARMACEUTICALS, INC.-2005-BP-20884NB

PATIENT
  Sex: Male

DRUGS (10)
  1. SPIRIVA [Suspect]
     Indication: CHRONIC OBSTRUCTIVE PULMONARY DISEASE
     Route: 055
  2. MUCODYNE [Suspect]
     Indication: ASTHMA
     Route: 048
     Dates: end: 20050926
  3. URINORM [Concomitant]
     Route: 048
     Dates: end: 20050716
  4. NORVASC [Concomitant]
     Indication: HYPERTENSION
     Route: 048
     Dates: end: 20051114
  5. SLO-BID [Concomitant]
     Route: 048
  6. HUSCODE [Concomitant]
     Route: 048
  7. PONOPHEN [Concomitant]
     Route: 048
  8. SULTANOL (SALBUTAMOL SULFATE) [Concomitant]
     Indication: ASTHMA
     Route: 055
     Dates: end: 20050926
  9. PREDNISOLONE [Concomitant]
     Route: 048
  10. SEREVENT [Concomitant]
     Route: 055

REACTIONS (4)
  - ALANINE AMINOTRANSFERASE INCREASED [None]
  - ASPARTATE AMINOTRANSFERASE INCREASED [None]
  - GAMMA-GLUTAMYLTRANSFERASE INCREASED [None]
  - LIVER DISORDER [None]
